FAERS Safety Report 9642479 (Version 1)
Quarter: 2013Q4

REPORT INFORMATION
  Report Type: Spontaneous
  Country: US (occurrence: US)
  Receive Date: 20131024
  Receipt Date: 20131024
  Transmission Date: 20140711
  Serious: No
  Sender: FDA-Public Use
  Company Number: US-009507513-1310USA008157

PATIENT
  Age: 64 Year
  Sex: Female

DRUGS (3)
  1. COSOPT [Suspect]
     Indication: INTRAOCULAR PRESSURE TEST ABNORMAL
     Dosage: 2 GTT, BID
     Route: 047
     Dates: start: 201309
  2. COSOPT [Suspect]
     Indication: GLAUCOMA
  3. ZIOPTAN [Suspect]
     Dosage: 2 GTT, QD

REACTIONS (4)
  - Eye burns [Recovering/Resolving]
  - Ocular hyperaemia [Recovering/Resolving]
  - Eye irritation [Recovering/Resolving]
  - Off label use [Unknown]
